FAERS Safety Report 7377295-8 (Version None)
Quarter: 2011Q1

REPORT INFORMATION
  Report Type: 
  Country: None (occurrence: None)
  Receive Date: 20110328
  Receipt Date: 20110316
  Transmission Date: 20110831
  Serious: No
  Sender: FDA-Public Use
  Company Number: US-JNJFOC-20110307509

PATIENT
  Age: 28 Year
  Sex: Male
  Weight: 109.77 kg

DRUGS (4)
  1. NORCO [Concomitant]
     Indication: BREAKTHROUGH PAIN
     Route: 048
  2. DURAGESIC-50 [Suspect]
     Indication: BACK PAIN
     Route: 062
  3. DURAGESIC-50 [Suspect]
     Indication: NEURALGIA
     Route: 062
  4. SOMA [Concomitant]
     Indication: MUSCLE SPASMS
     Route: 048

REACTIONS (2)
  - WRONG TECHNIQUE IN DRUG USAGE PROCESS [None]
  - HYPERHIDROSIS [None]
